FAERS Safety Report 15128801 (Version 2)
Quarter: 2018Q3

REPORT INFORMATION
  Report Type: Spontaneous
  Country: FR (occurrence: FR)
  Receive Date: 20180711
  Receipt Date: 20180910
  Transmission Date: 20181010
  Serious: Yes (Other)
  Sender: FDA-Public Use
  Company Number: FR-AMGEN-FRASP2018091334

PATIENT
  Age: 69 Year
  Sex: Female
  Weight: 71 kg

DRUGS (5)
  1. ARIMIDEX [Concomitant]
     Active Substance: ANASTROZOLE
     Dosage: UNK
  2. VITAMIN D [Concomitant]
     Active Substance: CHOLECALCIFEROL
     Dosage: UNK
  3. PROLIA [Suspect]
     Active Substance: DENOSUMAB
     Indication: OSTEOPOROSIS
     Dosage: UNK
     Route: 058
     Dates: start: 201404
  4. CALCIUM [Concomitant]
     Active Substance: CALCIUM
     Dosage: UNK
  5. NOLVADEX [Concomitant]
     Active Substance: TAMOXIFEN CITRATE
     Dosage: UNK

REACTIONS (1)
  - Pathological fracture [Unknown]

NARRATIVE: CASE EVENT DATE: 20180606
